FAERS Safety Report 20221131 (Version 1)
Quarter: 2021Q4

REPORT INFORMATION
  Report Type: Other
  Country: DE (occurrence: None)
  Receive Date: 20211223
  Receipt Date: 20211223
  Transmission Date: 20220303
  Serious: Yes (Other)
  Sender: FDA-Public Use
  Company Number: DE-ROCHE-2729851

PATIENT
  Age: 24 Year
  Sex: Male
  Weight: 80 kg

DRUGS (4)
  1. OCREVUS [Suspect]
     Active Substance: OCRELIZUMAB
     Indication: Relapsing-remitting multiple sclerosis
     Route: 042
     Dates: start: 20201106
  2. OCREVUS [Suspect]
     Active Substance: OCRELIZUMAB
     Dosage: FIRST INITIAL DOSE:07/MAY/2021
     Route: 042
     Dates: start: 20210507
  3. OCREVUS [Suspect]
     Active Substance: OCRELIZUMAB
     Route: 042
  4. AMPHETAMINE [Suspect]
     Active Substance: AMPHETAMINE
     Indication: Product used for unknown indication
     Dosage: SUBSEQUENT DOSE TAKEN ON 27/MAY/2021
     Route: 065

REACTIONS (15)
  - Nephrolithiasis [Recovered/Resolved]
  - Angina pectoris [Recovered/Resolved]
  - Depressed mood [Recovering/Resolving]
  - Musculoskeletal stiffness [Recovering/Resolving]
  - Tooth loss [Not Recovered/Not Resolved]
  - Tooth fracture [Not Recovered/Not Resolved]
  - Erectile dysfunction [Recovered/Resolved]
  - Amnesia [Recovered/Resolved]
  - Anxiety [Recovering/Resolving]
  - Weight decreased [Not Recovered/Not Resolved]
  - Night sweats [Not Recovered/Not Resolved]
  - Back pain [Recovering/Resolving]
  - Muscle spasms [Recovered/Resolved]
  - COVID-19 [Not Recovered/Not Resolved]
  - Pyrexia [Not Recovered/Not Resolved]

NARRATIVE: CASE EVENT DATE: 20210101
